FAERS Safety Report 4802818-X (Version None)
Quarter: 2005Q4

REPORT INFORMATION
  Report Type: 
  Country: None (occurrence: None)
  Receive Date: 20051013
  Receipt Date: 20050825
  Transmission Date: 20060501
  Serious: Yes (Other)
  Sender: FDA-Public Use
  Company Number: 199558

PATIENT
  Age: 41 Year
  Sex: Male

DRUGS (5)
  1. AVONEX (INTERFERON BETA) [Suspect]
     Indication: RELAPSING-REMITTING MULTIPLE SCLEROSIS
     Dosage: 30 UG;QW;IM
     Route: 030
     Dates: start: 20010101
  2. TANAKAN [Concomitant]
  3. OMIX [Concomitant]
  4. ASPEGIC 325 [Concomitant]
  5. EFFERALGAN [Concomitant]

REACTIONS (4)
  - DEPRESSION [None]
  - LEGAL PROBLEM [None]
  - PARTNER STRESS [None]
  - PHYSICAL ASSAULT [None]
